FAERS Safety Report 8862586 (Version 2)
Quarter: 2012Q4

REPORT INFORMATION
  Report Type: 
  Country: BR (occurrence: BR)
  Receive Date: 20121026
  Receipt Date: 20121106
  Transmission Date: 20130627
  Serious: Yes (Other)
  Sender: FDA-Public Use
  Company Number: BR-GENZYME-CERZ-1002678

PATIENT
  Age: 36 Year
  Sex: Female
  Weight: 46 kg

DRUGS (1)
  1. CEREZYME [Suspect]
     Indication: GAUCHER^S DISEASE
     Dosage: UNK
     Route: 042
     Dates: start: 2000

REACTIONS (7)
  - Hepatitis C [Unknown]
  - Bone pain [Unknown]
  - Renal pain [Unknown]
  - Thrombocytopenia [Unknown]
  - Headache [Unknown]
  - Abdominal pain [Unknown]
  - Abdominal pain upper [Unknown]
